FAERS Safety Report 15854854 (Version 2)
Quarter: 2019Q1

REPORT INFORMATION
  Report Type: Report from Study
  Country: CA (occurrence: CA)
  Receive Date: 20190122
  Receipt Date: 20190206
  Transmission Date: 20190417
  Serious: Yes (Hospitalization, Other)
  Sender: FDA-Public Use
  Company Number: CA-JNJFOC-20190123403

PATIENT
  Age: 64 Year
  Sex: Male
  Weight: 65.8 kg

DRUGS (1)
  1. STELARA [Suspect]
     Active Substance: USTEKINUMAB
     Indication: CROHN^S DISEASE
     Route: 058
     Dates: start: 20180619

REACTIONS (6)
  - Off label use [Unknown]
  - Lower respiratory tract infection [Recovered/Resolved]
  - Product use issue [Unknown]
  - Gastroenteritis [Recovered/Resolved]
  - Faecal calprotectin increased [Unknown]
  - Shoulder arthroplasty [Unknown]

NARRATIVE: CASE EVENT DATE: 20181225
